FAERS Safety Report 9432486 (Version 1)
Quarter: 2013Q3

REPORT INFORMATION
  Report Type: Spontaneous
  Country: US (occurrence: None)
  Receive Date: 20130730
  Receipt Date: 20130730
  Transmission Date: 20140515
  Serious: No
  Sender: FDA-Public Use
  Company Number: None

PATIENT
  Age: 67 Year
  Sex: Female
  Weight: 88.2 kg

DRUGS (1)
  1. TRIBENZOR [Suspect]
     Indication: HEART RATE IRREGULAR
     Dosage: 1 TABLET, ALY
     Dates: start: 201301, end: 20130711

REACTIONS (1)
  - Heart rate irregular [None]
